FAERS Safety Report 4999008-7 (Version None)
Quarter: 2006Q1

REPORT INFORMATION
  Report Type: 
  Country: None (occurrence: None)
  Receive Date: 20060315
  Receipt Date: 20060205
  Transmission Date: 20060701
  Serious: Yes (Other)
  Sender: FDA-Public Use
  Company Number: 435271

PATIENT
  Age: 58 Year
  Sex: Female
  Weight: 52.2 kg

DRUGS (1)
  1. BONIVA [Suspect]
     Indication: OSTEOPOROSIS
     Dosage: 150 MG 1 PER MONTH ORAL
     Route: 048
     Dates: start: 20051115, end: 20060125

REACTIONS (2)
  - DIARRHOEA [None]
  - WHITE BLOOD CELLS STOOL POSITIVE [None]
